FAERS Safety Report 9485344 (Version 1)
Quarter: 2013Q3

REPORT INFORMATION
  Report Type: Spontaneous
  Country: US (occurrence: US)
  Receive Date: 20130828
  Receipt Date: 20130828
  Transmission Date: 20140515
  Serious: Yes (Other)
  Sender: FDA-Public Use
  Company Number: US-SANOFI-AVENTIS-2013SA085242

PATIENT
  Sex: Male

DRUGS (2)
  1. LOVENOX [Suspect]
     Indication: THROMBOSIS PROPHYLAXIS
     Route: 065
     Dates: start: 20130820
  2. HEPARIN [Suspect]
     Dosage: DOSE:5000 UNIT(S)
     Route: 065

REACTIONS (1)
  - Haemoglobin decreased [Not Recovered/Not Resolved]
